FAERS Safety Report 7476112-5 (Version None)
Quarter: 2011Q2

REPORT INFORMATION
  Report Type: 
  Country: None (occurrence: None)
  Receive Date: 20110512
  Receipt Date: 20110511
  Transmission Date: 20111010
  Serious: Yes (Other)
  Sender: FDA-Public Use
  Company Number: HR-PFIZER INC-2011100690

PATIENT
  Age: 53 Year
  Sex: Male

DRUGS (5)
  1. ATORVASTATIN CALCIUM [Suspect]
     Dosage: 80 MG, UNK
     Route: 048
     Dates: start: 20090101
  2. FLUZEPAM [Concomitant]
     Dosage: 30 MG, UNK
     Route: 048
  3. MISAR [Concomitant]
     Dosage: 0.25 MG, UNK
     Route: 048
  4. TRITAZIDE [Concomitant]
     Dosage: UNK
     Route: 048
  5. GEMFIBROZIL [Interacting]
     Dosage: 450 MG, UNK
     Route: 048

REACTIONS (7)
  - MYALGIA [None]
  - HYPOAESTHESIA [None]
  - DRUG INTERACTION [None]
  - BLOOD CREATINE PHOSPHOKINASE INCREASED [None]
  - MUSCLE SPASMS [None]
  - PARAESTHESIA [None]
  - PAIN IN EXTREMITY [None]
